FAERS Safety Report 4860099-5 (Version None)
Quarter: 2005Q4

REPORT INFORMATION
  Report Type: 
  Country: None (occurrence: None)
  Receive Date: 20051219
  Receipt Date: 20050829
  Transmission Date: 20060501
  Serious: Yes (Hospitalization)
  Sender: FDA-Public Use
  Company Number: US-MERCK-0508USA04783

PATIENT
  Sex: Female
  Weight: 75 kg

DRUGS (1)
  1. VIOXX [Suspect]
     Indication: CANCER PAIN
     Route: 048

REACTIONS (10)
  - ADVERSE EVENT [None]
  - ANXIETY [None]
  - CEREBROVASCULAR ACCIDENT [None]
  - CHEST PAIN [None]
  - DEPRESSION [None]
  - NEOPLASM MALIGNANT [None]
  - POLYTRAUMATISM [None]
  - RESPIRATORY ARREST [None]
  - RESPIRATORY DISORDER [None]
  - STRESS [None]
